FAERS Safety Report 5663502-6 (Version None)
Quarter: 2008Q1

REPORT INFORMATION
  Report Type: 
  Country: None (occurrence: None)
  Receive Date: 20080307
  Receipt Date: 20080303
  Transmission Date: 20080703
  Serious: Yes (Hospitalization, Other)
  Sender: FDA-Public Use
  Company Number: 2006-07-2108

PATIENT
  Age: 80 Year
  Sex: Female

DRUGS (6)
  1. ALBUTEROL [Suspect]
     Indication: DRUG USE FOR UNKNOWN INDICATION
     Dosage: QD; INH
     Route: 055
     Dates: start: 20000101
  2. ALBUTEROL [Suspect]
  3. ALBUTEROL [Suspect]
  4. ALBUTEROL [Suspect]
  5. ALBUTEROL [Suspect]
  6. ALBUTEROL [Suspect]

REACTIONS (6)
  - DRUG INEFFECTIVE [None]
  - INCREASED UPPER AIRWAY SECRETION [None]
  - PHARMACEUTICAL PRODUCT COMPLAINT [None]
  - REGURGITATION [None]
  - THROAT IRRITATION [None]
  - UMBILICAL HERNIA [None]
